FAERS Safety Report 9144733 (Version 1)
Quarter: 2013Q1

REPORT INFORMATION
  Report Type: Spontaneous
  Country: AU (occurrence: AU)
  Receive Date: 20130306
  Receipt Date: 20130306
  Transmission Date: 20140127
  Serious: Yes (Other)
  Sender: FDA-Public Use
  Company Number: AU-009507513-1303AUS001481

PATIENT
  Age: 57 Year
  Sex: Male

DRUGS (3)
  1. RIBAVIRIN [Suspect]
     Dosage: 400 MG, QD
     Route: 048
  2. PEGASYS [Suspect]
     Dosage: 180 MICROGRAM, QW, ON WEEK 2
     Route: 058
  3. PEGASYS [Suspect]
     Dosage: 90 MICROGRAM, QW
     Route: 058

REACTIONS (8)
  - Hepatic cancer [Recovered/Resolved]
  - Hepatic failure [Recovered/Resolved]
  - Pancytopenia [Unknown]
  - Neutropenia [Unknown]
  - Irritability [Recovered/Resolved]
  - Poor quality sleep [Recovered/Resolved]
  - Decreased appetite [Recovered/Resolved]
  - Pain [Recovered/Resolved]
